FAERS Safety Report 8332642-5 (Version None)
Quarter: 2012Q1

REPORT INFORMATION
  Report Type: 
  Country: None (occurrence: None)
  Receive Date: 20120327
  Receipt Date: 20100806
  Transmission Date: 20120608
  Serious: Yes (Hospitalization, Other)
  Sender: FDA-Public Use
  Company Number: PHEH2009US16654

PATIENT
  Age: 67 Year
  Sex: Female
  Weight: 71.2 kg

DRUGS (29)
  1. ONDANSETRON [Concomitant]
  2. GLEEVEC [Suspect]
     Indication: GASTRIC CANCER
     Dosage: 400 MG, DAILY, ORAL
     Route: 048
     Dates: start: 20091027
  3. SODIUM POLYSTYRENE SULFONATE [Concomitant]
  4. SENNA (SENNA, SENNA ALEXANDRINA) [Concomitant]
  5. CATAPRES-TTS-1 [Concomitant]
  6. FERROUS SULFATE TAB [Concomitant]
  7. REMERON [Concomitant]
  8. FOLIC ACID [Concomitant]
  9. BLACK COHOSH (CIMICIFUGA RACEMOSA ROOT) [Concomitant]
  10. ASPIRIN [Concomitant]
  11. PROMETHAZINE [Concomitant]
  12. TRAZODONE HCL [Concomitant]
  13. VITAMIN D (COLECALCIFEROL) [Concomitant]
  14. POLYETHYLENE GLYCOL [Concomitant]
  15. IRON [Concomitant]
  16. SYNTHROID [Concomitant]
  17. DOCUSATE [Concomitant]
  18. VITAMIN B12 [Concomitant]
  19. PROCRIT [Concomitant]
  20. ASPIRIN [Concomitant]
  21. MECOBALAMIN [Concomitant]
  22. PROCRIT [Concomitant]
  23. VICODIN [Concomitant]
  24. NEXIUM [Concomitant]
  25. SODIUM BICARBONATE [Concomitant]
  26. FLEXERIL [Concomitant]
  27. BIOTIN [Concomitant]
  28. DETROL [Concomitant]
  29. NICOTINE [Concomitant]

REACTIONS (14)
  - FLUID RETENTION [None]
  - VOMITING [None]
  - BACK PAIN [None]
  - PNEUMONIA [None]
  - OSTEOARTHRITIS [None]
  - HYPERKALAEMIA [None]
  - METASTASES TO BONE [None]
  - FALL [None]
  - DECREASED APPETITE [None]
  - TOOTH DISORDER [None]
  - CONSTIPATION [None]
  - METASTASES TO LUNG [None]
  - NAUSEA [None]
  - MUSCLE SPASMS [None]
